FAERS Safety Report 5244942-6 (Version None)
Quarter: 2007Q1

REPORT INFORMATION
  Report Type: 
  Country: None (occurrence: None)
  Receive Date: 20070223
  Receipt Date: 20070209
  Transmission Date: 20070707
  Serious: Yes (Other)
  Sender: FDA-Public Use
  Company Number: DE-BRACCO-BRO-011156

PATIENT
  Sex: Male

DRUGS (8)
  1. SOLUTRAST [Suspect]
     Route: 013
     Dates: start: 20070206, end: 20070206
  2. SOLUTRAST [Suspect]
     Indication: ACUTE MYOCARDIAL INFARCTION
     Route: 013
     Dates: start: 20070206, end: 20070206
  3. SIMVABETA [Concomitant]
     Route: 048
  4. ALLOPURINOL SODIUM [Concomitant]
     Route: 048
  5. METFORMIN HCL [Concomitant]
     Route: 048
  6. METOHEXAL [Concomitant]
     Route: 048
  7. SPASMEX [Concomitant]
     Route: 050
  8. IS 5 MONO [Concomitant]
     Route: 050

REACTIONS (2)
  - CONFUSIONAL STATE [None]
  - RESTLESSNESS [None]
